FAERS Safety Report 10027535 (Version 1)
Quarter: 2014Q1

REPORT INFORMATION
  Report Type: Spontaneous
  Country: US (occurrence: None)
  Receive Date: 20140218
  Receipt Date: 20140218
  Transmission Date: 20141002
  Serious: Yes (Other)
  Sender: FDA-Public Use
  Company Number: 2010S1004629

PATIENT
  Age: 70 Year
  Sex: Female
  Weight: 60.78 kg

DRUGS (4)
  1. FLEET PHOSPHO-SODA [Suspect]
     Indication: COLONOSCOPY
     Dosage: 2 IN 24 HOURS
     Route: 048
     Dates: start: 20070819, end: 20070819
  2. HYZAAR (HYDROCHLOROTHIAZIDE, LOSARTAN POTASSIUM) [Concomitant]
  3. ZOCOR (SIMVASTATIN) [Concomitant]
  4. ASPIRIN  (ACETYLSALICYLIC ACID) [Concomitant]

REACTIONS (4)
  - Injury [None]
  - Gastroenteritis viral [None]
  - Renal failure [None]
  - Inappropriate schedule of drug administration [None]
